FAERS Safety Report 10199827 (Version 1)
Quarter: 2014Q2

REPORT INFORMATION
  Report Type: Spontaneous
  Country: US (occurrence: US)
  Receive Date: 20140527
  Receipt Date: 20140527
  Transmission Date: 20141212
  Serious: Yes (Other)
  Sender: FDA-Public Use
  Company Number: CHPA2014US006996

PATIENT
  Age: 88 Year
  Sex: Female

DRUGS (2)
  1. EX-LAX MAX STR LAX PILLS SENNA [Suspect]
     Indication: BOWEL MOVEMENT IRREGULARITY
     Dosage: 15 DF, EVERY 3 TO 4 DAYS
     Route: 048
  2. EX-LAX REG STR LAX PILLS SENNA [Suspect]
     Dosage: 15 DF, EVERY 3 TO 4 DAYS

REACTIONS (3)
  - Drug dependence [Unknown]
  - Constipation [Unknown]
  - Incorrect dose administered [Unknown]
